FAERS Safety Report 6370933-8 (Version None)
Quarter: 2009Q3

REPORT INFORMATION
  Report Type: 
  Country: None (occurrence: None)
  Receive Date: 20090923
  Receipt Date: 20070725
  Transmission Date: 20100115
  Serious: Yes (Hospitalization)
  Sender: FDA-Public Use
  Company Number: US-ASTRAZENECA-2006UW23493

PATIENT
  Age: 18836 Day
  Sex: Male
  Weight: 95.3 kg

DRUGS (16)
  1. SEROQUEL [Suspect]
     Dosage: 25-400 MG
     Route: 048
     Dates: start: 20020420
  2. HYDROCHLOROTHIAZIDE [Concomitant]
     Route: 048
     Dates: start: 20020420
  3. PREVACID [Concomitant]
     Route: 048
     Dates: start: 20020420
  4. DOXEPIN HCL [Concomitant]
     Route: 048
     Dates: start: 20020420
  5. ZYPREXA [Concomitant]
     Route: 048
     Dates: start: 20020420
  6. POTASSIUM CHLORIDE [Concomitant]
     Route: 048
     Dates: start: 20020420
  7. ZOLOFT [Concomitant]
     Route: 048
     Dates: start: 20020420
  8. TRILEPTAL [Concomitant]
     Route: 048
     Dates: start: 20020420
  9. MONOPRIL [Concomitant]
     Route: 048
     Dates: start: 20020420
  10. CELEXA [Concomitant]
     Route: 048
     Dates: start: 20020420
  11. LASIX [Concomitant]
     Route: 048
     Dates: start: 20020420
  12. SKELAXIN [Concomitant]
     Route: 048
     Dates: start: 20020420
  13. AMARYL [Concomitant]
     Route: 048
     Dates: start: 20020420
  14. NOVOLIN 70/30 [Concomitant]
     Dosage: 20 UNITS GAM AND 15 UNITS GPM
     Route: 058
     Dates: start: 20020420
  15. ROBAXIN [Concomitant]
     Route: 048
     Dates: start: 20020420
  16. PROTONIX [Concomitant]
     Route: 048
     Dates: start: 20020420

REACTIONS (4)
  - DIABETES MELLITUS [None]
  - DIABETIC COMA [None]
  - DIABETIC KETOACIDOSIS [None]
  - TYPE 2 DIABETES MELLITUS [None]
